FAERS Safety Report 19264461 (Version 1)
Quarter: 2021Q2

REPORT INFORMATION
  Report Type: Spontaneous
  Country: US (occurrence: US)
  Receive Date: 20210517
  Receipt Date: 20210517
  Transmission Date: 20210717
  Serious: No
  Sender: FDA-Public Use
  Company Number: None

PATIENT
  Age: 74 Year
  Sex: Male
  Weight: 96 kg

DRUGS (2)
  1. RIVAROXABAN (RIVAROXABAN 20MG TAB) [Suspect]
     Active Substance: RIVAROXABAN
     Route: 048
     Dates: start: 20150828
  2. ASPIRIN (ASPIRIN 81MG TAB,EC) [Suspect]
     Active Substance: ASPIRIN
     Route: 048
     Dates: start: 20200226

REACTIONS (5)
  - Haematoma [None]
  - Anaemia [None]
  - Urinary tract infection [None]
  - Haematuria [None]
  - Road traffic accident [None]

NARRATIVE: CASE EVENT DATE: 20210430
